FAERS Safety Report 15398176 (Version 1)
Quarter: 2018Q3

REPORT INFORMATION
  Report Type: Spontaneous
  Country: AU (occurrence: AU)
  Receive Date: 20180918
  Receipt Date: 20180918
  Transmission Date: 20181010
  Serious: Yes (Other)
  Sender: FDA-Public Use
  Company Number: AU-AMGEN-AUSSP2018127820

PATIENT
  Age: 42 Year
  Sex: Male

DRUGS (6)
  1. NILOTINIB [Concomitant]
     Active Substance: NILOTINIB
     Dosage: 400 MG, BID
     Dates: start: 201711
  2. DEXAMETHASONE. [Concomitant]
     Active Substance: DEXAMETHASONE
     Dosage: 20 MG, BID
  3. BLINCYTO [Suspect]
     Active Substance: BLINATUMOMAB
     Indication: ACUTE LYMPHOCYTIC LEUKAEMIA RECURRENT
     Dosage: UNK
     Route: 065
     Dates: start: 201701
  4. NILOTINIB [Concomitant]
     Active Substance: NILOTINIB
     Dosage: 200 MG, BID
  5. DEXAMETHASONE. [Concomitant]
     Active Substance: DEXAMETHASONE
     Dosage: 20 MG, QD
  6. PONATINIB [Concomitant]
     Active Substance: PONATINIB
     Dosage: 45 MG, QD

REACTIONS (6)
  - Arthralgia [Unknown]
  - Liver function test abnormal [Unknown]
  - Acute lymphocytic leukaemia recurrent [Unknown]
  - Sepsis [Unknown]
  - Back pain [Unknown]
  - Musculoskeletal pain [Unknown]

NARRATIVE: CASE EVENT DATE: 2017
